FAERS Safety Report 4656839-0 (Version None)
Quarter: 2005Q2

REPORT INFORMATION
  Report Type: 
  Country: None (occurrence: None)
  Receive Date: 20050505
  Receipt Date: 20050426
  Transmission Date: 20051028
  Serious: Yes (Death)
  Sender: FDA-Public Use
  Company Number: 04P-028-0277713-00

PATIENT
  Age: 57 Year
  Sex: Male

DRUGS (11)
  1. EPIVAL (DEPAKOTE) (DIVALPROEX SODIUM) (DIVALPROEX SODIUM) [Suspect]
     Indication: BIPOLAR DISORDER
     Dosage: 1500 MG, 1 IN 1 EVENING, PER ORAL
     Route: 048
  2. EPIVAL (DEPAKOTE) (DIVALPROEX SODIUM) (DIVALPROEX SODIUM) [Suspect]
     Indication: MANIA
     Dosage: 1500 MG, 1 IN 1 EVENING, PER ORAL
     Route: 048
  3. EPIVAL (DEPAKOTE) (DIVALPROEX SODIUM) (DIVALPROEX SODIUM) [Suspect]
     Indication: PSYCHOTIC DISORDER
     Dosage: 1500 MG, 1 IN 1 EVENING, PER ORAL
     Route: 048
  4. OLANZAPINE [Suspect]
     Indication: BIPOLAR DISORDER
     Dosage: 15 MG, 1 IN 1 EVENING, PER ORAL
     Route: 048
     Dates: start: 20040422
  5. OLANZAPINE [Suspect]
     Indication: MANIA
     Dosage: 15 MG, 1 IN 1 EVENING, PER ORAL
     Route: 048
     Dates: start: 20040422
  6. OLANZAPINE [Suspect]
     Indication: PSYCHOTIC DISORDER
     Dosage: 15 MG, 1 IN 1 EVENING, PER ORAL
     Route: 048
     Dates: start: 20040422
  7. POSTMARKETED STUDY DRUGS [Suspect]
     Dates: start: 20040422
  8. CLONAZEPAM [Concomitant]
  9. OMEPRAZOLE [Concomitant]
  10. ROFECOXIB [Concomitant]
  11. ZOPICLONE [Concomitant]

REACTIONS (7)
  - ABDOMINAL DISCOMFORT [None]
  - CHEST DISCOMFORT [None]
  - CORONARY ARTERY ATHEROSCLEROSIS [None]
  - CORONARY ARTERY STENOSIS [None]
  - PNEUMONIA [None]
  - PULMONARY OEDEMA [None]
  - THYROID NEOPLASM [None]
